FAERS Safety Report 6298498-X (Version None)
Quarter: 2009Q3

REPORT INFORMATION
  Report Type: 
  Country: None (occurrence: None)
  Receive Date: 20090724
  Receipt Date: 20090505
  Transmission Date: 20100115
  Serious: Yes (Other)
  Sender: FDA-Public Use
  Company Number: 2006BI017046

PATIENT
  Age: 43 Year
  Sex: Male

DRUGS (2)
  1. TYSABRI [Suspect]
     Indication: MULTIPLE SCLEROSIS
     Dosage: 300 MG; QM; IV
     Route: 042
     Dates: start: 20050131
  2. AVONEX [Concomitant]

REACTIONS (3)
  - ANAPHYLACTIC REACTION [None]
  - ANXIETY [None]
  - HYPERSENSITIVITY [None]
